FAERS Safety Report 8153360-2 (Version None)
Quarter: 2012Q1

REPORT INFORMATION
  Report Type: 
  Country: None (occurrence: None)
  Receive Date: 20120221
  Receipt Date: 20120216
  Transmission Date: 20120608
  Serious: Yes (Life-Threatening, Other)
  Sender: FDA-Public Use
  Company Number: GB-PFIZER INC-2011268919

PATIENT
  Age: 47 Year
  Sex: Female
  Weight: 65 kg

DRUGS (4)
  1. VENTOLIN [Concomitant]
  2. LEVOTHYROXINE [Concomitant]
  3. VARENICLINE TARTRATE [Suspect]
     Indication: SMOKING CESSATION THERAPY
     Dosage: 1 MG, 2X/DAY
     Route: 048
     Dates: start: 20110909, end: 20111010
  4. FLUOXETINE [Concomitant]
     Indication: DEPRESSION
     Dosage: 60 MG, UNK

REACTIONS (4)
  - ROAD TRAFFIC ACCIDENT [None]
  - ALCOHOL ABUSE [None]
  - THINKING ABNORMAL [None]
  - SUICIDAL IDEATION [None]
